FAERS Safety Report 9162016 (Version 1)
Quarter: 2013Q1

REPORT INFORMATION
  Report Type: Spontaneous
  Country: IT (occurrence: None)
  Receive Date: 20130220
  Receipt Date: 20130220
  Transmission Date: 20140127
  Serious: Yes (Hospitalization)
  Sender: FDA-Public Use
  Company Number: AUR-APL-2013-01406

PATIENT
  Age: 75 Year
  Sex: Female

DRUGS (5)
  1. GABAPENTIN (GABAPENTIN) [Suspect]
     Indication: PRODUCT USED FOR UNKNOWN INDICATION
     Route: 048
     Dates: start: 20121101, end: 20121106
  2. STILNOX [Suspect]
     Indication: PRODUCT USED FOR UNKNOWN INDICATION
     Route: 048
     Dates: start: 20111106, end: 20121106
  3. NOVORAPID (INSULIN ASPART) [Concomitant]
  4. LANTUS (INSULIN GLARGINE) [Concomitant]
  5. GLUCOPHAGE (METFORMIN) [Concomitant]

REACTIONS (3)
  - Dizziness postural [None]
  - Femoral neck fracture [None]
  - Fall [None]
